FAERS Safety Report 22353503 (Version 2)
Quarter: 2023Q2

REPORT INFORMATION
  Report Type: Spontaneous
  Country: US (occurrence: US)
  Receive Date: 20230523
  Receipt Date: 20230526
  Transmission Date: 20230721
  Serious: No
  Sender: FDA-Public Use
  Company Number: US-AMGEN-USASP2023088107

PATIENT
  Age: 38 Year
  Sex: Female

DRUGS (5)
  1. OTEZLA [Suspect]
     Active Substance: APREMILAST
     Indication: Psoriasis
     Dosage: 30 MILLIGRAM, BID
     Route: 048
     Dates: start: 20221115, end: 20230522
  2. LIDOCAINE [Concomitant]
     Active Substance: LIDOCAINE
  3. NYSTATIN [Concomitant]
     Active Substance: NYSTATIN
  4. PREDNISONE [Concomitant]
     Active Substance: PREDNISONE
  5. BENZONATATE [Concomitant]
     Active Substance: BENZONATATE

REACTIONS (1)
  - Drug ineffective [Recovered/Resolved]

NARRATIVE: CASE EVENT DATE: 20230522
